FAERS Safety Report 10238226 (Version 1)
Quarter: 2014Q2

REPORT INFORMATION
  Report Type: Spontaneous
  Country: PL (occurrence: PL)
  Receive Date: 20140616
  Receipt Date: 20140616
  Transmission Date: 20141212
  Serious: Yes (Hospitalization)
  Sender: FDA-Public Use
  Company Number: PL-JNJFOC-20140606954

PATIENT
  Age: 68 Year
  Sex: Male

DRUGS (13)
  1. XARELTO [Suspect]
     Indication: CEREBROVASCULAR ACCIDENT PROPHYLAXIS
     Route: 048
     Dates: start: 20140501, end: 20140530
  2. XARELTO [Suspect]
     Indication: ATRIAL FIBRILLATION
     Route: 048
     Dates: start: 20140501, end: 20140530
  3. FOLIC ACID [Concomitant]
     Route: 065
  4. TRITACE [Concomitant]
     Route: 065
  5. CONCOR COR [Concomitant]
     Route: 065
  6. OPACORDEN [Concomitant]
     Route: 065
  7. SPIRONOL [Concomitant]
     Route: 065
  8. KALIPOZ [Concomitant]
     Route: 065
  9. CLOPIDOGREL [Concomitant]
     Indication: CEREBROVASCULAR ACCIDENT PROPHYLAXIS
     Route: 048
  10. CLOPIDOGREL [Concomitant]
     Indication: ATRIAL FIBRILLATION
     Route: 048
  11. ACARD [Concomitant]
     Indication: CEREBROVASCULAR ACCIDENT PROPHYLAXIS
     Route: 048
     Dates: start: 2012
  12. ACARD [Concomitant]
     Indication: ATRIAL FIBRILLATION
     Route: 048
     Dates: start: 2012
  13. DIAPREL [Concomitant]
     Route: 065

REACTIONS (2)
  - Ischaemic stroke [Recovering/Resolving]
  - Drug ineffective [Unknown]
